FAERS Safety Report 7207289-4 (Version None)
Quarter: 2011Q1

REPORT INFORMATION
  Report Type: 
  Country: None (occurrence: None)
  Receive Date: 20110103
  Receipt Date: 20101229
  Transmission Date: 20110831
  Serious: Yes (Death, Hospitalization)
  Sender: FDA-Public Use
  Company Number: IN-JNJFOC-20110100154

PATIENT
  Age: 68 Year
  Sex: Male

DRUGS (4)
  1. ASPIRIN [Concomitant]
  2. REOPRO [Suspect]
     Indication: PERCUTANEOUS CORONARY INTERVENTION
  3. EFFIENT [Suspect]
  4. EFFIENT [Suspect]
     Indication: PERCUTANEOUS CORONARY INTERVENTION

REACTIONS (2)
  - GASTROINTESTINAL HAEMORRHAGE [None]
  - DEATH [None]
